FAERS Safety Report 5199417-X (Version None)
Quarter: 2006Q4

REPORT INFORMATION
  Report Type: 
  Country: None (occurrence: None)
  Receive Date: 20061229
  Receipt Date: 20061215
  Transmission Date: 20070319
  Serious: Yes (Hospitalization)
  Sender: FDA-Public Use
  Company Number: 2006BI004764

PATIENT
  Sex: Female
  Weight: 68.0396 kg

DRUGS (4)
  1. AVONEX [Suspect]
     Indication: MULTIPLE SCLEROSIS
     Dosage: 30 UG; QW; IM
     Route: 030
  2. AVONEX [Suspect]
     Indication: MULTIPLE SCLEROSIS
     Dosage: 30 UG; QW; IM
     Route: 030
  3. CALCIUM [Concomitant]
  4. ZYPREXA [Concomitant]

REACTIONS (13)
  - ABNORMAL BEHAVIOUR [None]
  - AFFECTIVE DISORDER [None]
  - ANXIETY [None]
  - BIPOLAR DISORDER [None]
  - BLOOD CHOLESTEROL INCREASED [None]
  - CONDITION AGGRAVATED [None]
  - DEPRESSION [None]
  - HYPERTENSION [None]
  - INSOMNIA [None]
  - MANIA [None]
  - MULTIPLE SCLEROSIS [None]
  - PAIN [None]
  - PSYCHOTIC DISORDER [None]
